FAERS Safety Report 25189882 (Version 1)
Quarter: 2025Q2

REPORT INFORMATION
  Report Type: Report from Study
  Country: IT (occurrence: IT)
  Receive Date: 20250411
  Receipt Date: 20250411
  Transmission Date: 20250717
  Serious: Yes (Other)
  Sender: TEVA
  Company Number: None

PATIENT
  Age: 75 Year
  Sex: Female

DRUGS (2)
  1. FLUOROURACIL [Suspect]
     Active Substance: FLUOROURACIL
     Indication: Pancreatic carcinoma recurrent
     Route: 042
     Dates: start: 20240912
  2. IRINOTECAN SUCROSOFATE [Suspect]
     Active Substance: IRINOTECAN SUCROSOFATE
     Indication: Pancreatic carcinoma recurrent
     Route: 042

REACTIONS (3)
  - Neutropenia [Recovered/Resolved]
  - Aeromonas infection [Recovered/Resolved]
  - Pyrexia [Recovered/Resolved]

NARRATIVE: CASE EVENT DATE: 20240925
